FAERS Safety Report 9466061 (Version 2)
Quarter: 2014Q2

REPORT INFORMATION
  Report Type: Spontaneous
  Country: US (occurrence: US)
  Receive Date: 20130820
  Receipt Date: 20140429
  Transmission Date: 20141212
  Serious: Yes (Death, Hospitalization, Other)
  Sender: FDA-Public Use
  Company Number: US-B.I. PHARMACEUTICALS,INC./RIDGEFIELD-2013-BI-25637BP

PATIENT
  Age: 83 Year
  Sex: Female
  Weight: 71.21 kg

DRUGS (18)
  1. PRADAXA [Suspect]
     Indication: ANTICOAGULANT THERAPY
     Dosage: 150 MG
     Route: 048
     Dates: start: 20110503, end: 20111018
  2. PRADAXA [Suspect]
     Indication: ATRIAL FIBRILLATION
  3. PRADAXA [Suspect]
     Indication: DEEP VEIN THROMBOSIS
  4. METOPROLOL [Concomitant]
     Dosage: 50 MG
     Route: 065
  5. BENAZEPRIL [Concomitant]
     Dosage: 40 MG
     Route: 065
  6. HYDROCHLOROTHIAZIDE [Concomitant]
     Route: 065
  7. CALCITROL [Concomitant]
     Route: 065
  8. RANITIDINE [Concomitant]
     Route: 065
  9. CLONIDINE [Concomitant]
     Dosage: 0.4 MG
     Route: 065
  10. LIPITOR [Concomitant]
     Dosage: 40 MG
     Route: 065
  11. LORAZEPAM [Concomitant]
     Route: 065
  12. OXYCONTIN [Concomitant]
     Route: 065
  13. ENTOCORT [Concomitant]
     Indication: DIARRHOEA
     Route: 065
  14. ALLOPURINOL [Concomitant]
     Dosage: 150 MG
     Route: 065
  15. AMLODIPINE [Concomitant]
     Dosage: 2.5 MG
     Route: 065
  16. SINGULAIR [Concomitant]
     Dosage: 10 MG
     Route: 065
  17. VITAMIN D3 [Concomitant]
     Dosage: 4000 U
     Route: 065
  18. PRO FERRIN ES [Concomitant]
     Route: 065

REACTIONS (8)
  - Gastrointestinal haemorrhage [Fatal]
  - Cellulitis gangrenous [Unknown]
  - Coagulopathy [Unknown]
  - Anaemia [Unknown]
  - Haematochezia [Unknown]
  - Renal failure acute [Unknown]
  - Abdominal discomfort [Unknown]
  - Contusion [Unknown]
